FAERS Safety Report 5474378-4 (Version None)
Quarter: 2007Q3

REPORT INFORMATION
  Report Type: 
  Country: None (occurrence: None)
  Receive Date: 20070928
  Receipt Date: 20070928
  Transmission Date: 20080115
  Serious: No
  Sender: FDA-Public Use
  Company Number: None

PATIENT
  Age: 71 Year
  Sex: Male

DRUGS (2)
  1. LIPITOR [Suspect]
     Dosage: 10 MG QD
     Dates: start: 20050101, end: 20050516
  2. SAW PALMETTO [Concomitant]

REACTIONS (6)
  - AUTOIMMUNE HEPATITIS [None]
  - BLOOD IMMUNOGLOBULIN G INCREASED [None]
  - COAGULOPATHY [None]
  - HEPATITIS ACUTE [None]
  - LIVER INJURY [None]
  - TREMOR [None]
